FAERS Safety Report 8505910-1 (Version None)
Quarter: 2012Q3

REPORT INFORMATION
  Report Type: 
  Country: None (occurrence: None)
  Receive Date: 20120712
  Receipt Date: 20120705
  Transmission Date: 20120928
  Serious: Yes (Life-Threatening, Hospitalization)
  Sender: FDA-Public Use
  Company Number: CA-UCBSA-061161

PATIENT
  Age: 65 Year
  Sex: Male
  Weight: 109 kg

DRUGS (12)
  1. VIMPAT [Suspect]
     Route: 048
  2. LEVETIRACETAM [Concomitant]
     Dosage: UNKNOWN DOSE
  3. HYDROCHLOROTHIAZIDE [Concomitant]
     Dosage: UNKNOWN DOSE
  4. METFORMIN HCL [Concomitant]
     Dosage: UNKNOWN DOSE
  5. DILTIAZEM [Concomitant]
     Dosage: UNKNOWN DOSE
  6. SIMVASTATIN [Concomitant]
     Dosage: UNKNOWN DOSE
  7. VALSARTAN [Concomitant]
     Dosage: UNKNOWN DOSE
  8. BEZALIP SR [Concomitant]
     Dosage: EXTENDED RELEASE
  9. CLOBAZAM-10 [Concomitant]
     Dosage: STRENGTH-10
  10. FLECAINIDE ACETATE [Concomitant]
     Dosage: UNKNOWN DOSE
  11. STUDY DRUG [Concomitant]
  12. ASPIRIN [Concomitant]
     Dosage: UNKNOWN DOSE

REACTIONS (5)
  - ATAXIA [None]
  - DIZZINESS [None]
  - LOSS OF CONSCIOUSNESS [None]
  - DYSARTHRIA [None]
  - GAIT DISTURBANCE [None]
